FAERS Safety Report 24908530 (Version 1)
Quarter: 2025Q1

REPORT INFORMATION
  Report Type: Report from Study
  Country: DE (occurrence: DE)
  Receive Date: 20250131
  Receipt Date: 20250131
  Transmission Date: 20250409
  Serious: No
  Sender: ROCHE
  Company Number: DE-ML39632-2420852-0

PATIENT
  Age: 56 Year
  Sex: Male
  Weight: 95 kg

DRUGS (11)
  1. OCREVUS [Suspect]
     Active Substance: OCRELIZUMAB
     Indication: Primary progressive multiple sclerosis
     Route: 040
     Dates: start: 20190801, end: 20190815
  2. OCREVUS [Suspect]
     Active Substance: OCRELIZUMAB
     Route: 040
     Dates: start: 20200117
  3. DALFAMPRIDINE [Concomitant]
     Active Substance: DALFAMPRIDINE
     Route: 048
     Dates: start: 201910, end: 202001
  4. DALFAMPRIDINE [Concomitant]
     Active Substance: DALFAMPRIDINE
     Route: 048
     Dates: start: 20221213
  5. VALSARTAN [Concomitant]
     Active Substance: VALSARTAN
     Indication: Hypertension
     Route: 048
     Dates: start: 201812
  6. Leracanidipine [Concomitant]
     Indication: Hypertension
     Route: 048
  7. OLANZAPINE [Concomitant]
     Active Substance: OLANZAPINE
     Indication: Schizophrenia
     Dates: start: 2009
  8. PREDNISOLONE [Concomitant]
     Active Substance: PREDNISOLONE
     Route: 040
     Dates: start: 20190725
  9. VITAMIN D [Concomitant]
     Active Substance: VITAMIN D NOS
     Dosage: DOSE: 1000
  10. EBASTINE [Concomitant]
     Active Substance: EBASTINE
     Route: 048
     Dates: start: 20190724
  11. CANDESARTAN CILEXETIL [Concomitant]
     Active Substance: CANDESARTAN CILEXETIL
     Indication: Hypertension
     Route: 048

REACTIONS (1)
  - Onychomycosis [Recovered/Resolved]

NARRATIVE: CASE EVENT DATE: 20240901
